FAERS Safety Report 10546646 (Version 2)
Quarter: 2014Q4

REPORT INFORMATION
  Report Type: Report from Study
  Country: US (occurrence: US)
  Receive Date: 20141027
  Receipt Date: 20141027
  Transmission Date: 20150529
  Serious: No
  Sender: FDA-Public Use
  Company Number: US-ABBVIE-13P-163-1177891-00

PATIENT
  Age: 40 Year
  Sex: Female
  Weight: 60.38 kg

DRUGS (5)
  1. LUPRON DEPOT [Suspect]
     Active Substance: LEUPROLIDE ACETATE
     Indication: OFF LABEL USE
     Dates: start: 20131121, end: 20131121
  2. LUPRON DEPOT [Suspect]
     Active Substance: LEUPROLIDE ACETATE
     Indication: PELVIC PAIN
  3. CLONAZEPAM. [Concomitant]
     Active Substance: CLONAZEPAM
     Indication: PRODUCT USED FOR UNKNOWN INDICATION
  4. SOMA [Concomitant]
     Active Substance: CARISOPRODOL
     Indication: PRODUCT USED FOR UNKNOWN INDICATION
     Dosage: AS NEEDED UP TO 4 TIMES A DAY
  5. LUPRON DEPOT [Suspect]
     Active Substance: LEUPROLIDE ACETATE
     Indication: ADENOMYOSIS

REACTIONS (12)
  - Mood swings [Recovered/Resolved]
  - Hot flush [Not Recovered/Not Resolved]
  - Crying [Not Recovered/Not Resolved]
  - Psoriatic arthropathy [Not Recovered/Not Resolved]
  - Menstrual disorder [Recovered/Resolved]
  - Breast tenderness [Recovered/Resolved]
  - Off label use [Not Recovered/Not Resolved]
  - Anger [Not Recovered/Not Resolved]
  - Irritability [Not Recovered/Not Resolved]
  - Feeling cold [Recovered/Resolved]
  - Dizziness [Recovered/Resolved]
  - Dysphemia [Recovered/Resolved]

NARRATIVE: CASE EVENT DATE: 20131121
